FAERS Safety Report 6204389-2 (Version None)
Quarter: 2009Q2

REPORT INFORMATION
  Report Type: 
  Country: None (occurrence: None)
  Receive Date: 20090518
  Receipt Date: 20090202
  Transmission Date: 20091009
  Serious: No
  Sender: FDA-Public Use
  Company Number: WAES 0902USA00235

PATIENT
  Age: 77 Year
  Sex: Male

DRUGS (7)
  1. JANUVIA [Suspect]
     Indication: DIABETES MELLITUS
     Dosage: PO
     Route: 048
     Dates: start: 20080101, end: 20080601
  2. ACTOS [Concomitant]
  3. LEVOXYL [Concomitant]
  4. LIPITOR [Concomitant]
  5. MICRONASE [Concomitant]
  6. PLAVIX [Concomitant]
  7. TOPROL-XL [Concomitant]

REACTIONS (3)
  - BLOOD GLUCOSE FLUCTUATION [None]
  - INAPPROPRIATE SCHEDULE OF DRUG ADMINISTRATION [None]
  - WRONG TECHNIQUE IN DRUG USAGE PROCESS [None]
